FAERS Safety Report 11099388 (Version 1)
Quarter: 2015Q2

REPORT INFORMATION
  Report Type: Report from Study
  Country: US (occurrence: US)
  Receive Date: 20150508
  Receipt Date: 20150508
  Transmission Date: 20150821
  Serious: Yes (Hospitalization, Other)
  Sender: FDA-Public Use
  Company Number: US-BIOGENIDEC-2015BI059674

PATIENT
  Age: 34 Year
  Sex: Female

DRUGS (1)
  1. TYSABRI [Suspect]
     Active Substance: NATALIZUMAB
     Indication: MULTIPLE SCLEROSIS
     Route: 042
     Dates: start: 20150422

REACTIONS (8)
  - Chest pain [Recovered/Resolved with Sequelae]
  - Dizziness [Recovered/Resolved]
  - Palpitations [Recovered/Resolved]
  - Device related infection [Unknown]
  - Contusion [Recovered/Resolved]
  - Heart rate increased [Recovered/Resolved with Sequelae]
  - Fall [Recovered/Resolved]
  - Influenza like illness [Recovered/Resolved]

NARRATIVE: CASE EVENT DATE: 201504
